FAERS Safety Report 15108298 (Version 4)
Quarter: 2019Q1

REPORT INFORMATION
  Report Type: Report from Study
  Country: None (occurrence: US)
  Receive Date: 20180705
  Receipt Date: 20190212
  Transmission Date: 20190417
  Serious: Yes (Other)
  Sender: FDA-Public Use
  Company Number: US-ABBVIE-18K-163-2409353-00

PATIENT
  Age: 14 Year
  Sex: Female

DRUGS (2)
  1. HUMIRA [Suspect]
     Active Substance: ADALIMUMAB
     Indication: CROHN^S DISEASE
  2. HUMIRA [Suspect]
     Active Substance: ADALIMUMAB
     Indication: CROHN^S DISEASE
     Route: 058

REACTIONS (8)
  - Procedural vomiting [Unknown]
  - Alopecia [Unknown]
  - Tremor [Unknown]
  - Large intestinal obstruction [Unknown]
  - Post procedural sepsis [Unknown]
  - Large intestinal stenosis [Unknown]
  - Psoriasis [Unknown]
  - Large intestine polyp [Unknown]

NARRATIVE: CASE EVENT DATE: 201807
